FAERS Safety Report 7587254 (Version 4)
Quarter: 2012Q4

REPORT INFORMATION
  Report Type: Report from Study
  Country: US (occurrence: US)
  Receive Date: 20100915
  Receipt Date: 20120914
  Transmission Date: 20130627
  Serious: Yes (Hospitalization, Other)
  Sender: FDA-Public Use
  Company Number: US-ROCHE-725906

PATIENT
  Age: 69 Year
  Sex: Female
  Weight: 61.22 kg

DRUGS (27)
  1. AVASTIN [Suspect]
     Indication: NON-SMALL CELL LUNG CANCER
     Dosage: LAST DOSE PRIOR TO SAE: 29 JULY 2010
     Route: 042
  2. AVASTIN [Suspect]
     Dosage: DRUG THERAPY ON HOLD.
     Route: 042
  3. AVASTIN [Suspect]
     Route: 065
  4. PEMETREXED [Suspect]
     Indication: NON-SMALL CELL LUNG CANCER
     Dosage: LAST DOSE PRIOR TO SAE: 29 JULY 2010
     Route: 042
     Dates: start: 20100707, end: 20100729
  5. PEMETREXED [Suspect]
     Dosage: DRUG THERAPY ON HOLD.
     Route: 042
     Dates: end: 20100819
  6. PEMETREXED [Suspect]
     Route: 065
     Dates: end: 20100903
  7. CARBOPLATIN [Suspect]
     Indication: NON-SMALL CELL LUNG CANCER
     Dosage: DOSE: 6 AUC LAST DOSE PRIOR TO SAE: 29 JULY 2010.
     Route: 042
     Dates: start: 20100707, end: 20100729
  8. CARBOPLATIN [Suspect]
     Dosage: DRUG THERAPY ON HOLD.
     Route: 042
     Dates: end: 20100819
  9. CARBOPLATIN [Suspect]
     Route: 065
     Dates: end: 20100903
  10. VITAMIN C [Concomitant]
     Route: 065
  11. CALCIUM [Concomitant]
     Dosage: REPORTED AS CALCIUM W/ VITAMIN D
     Route: 065
  12. ALBUTEROL [Concomitant]
     Route: 065
  13. FEXOFENADINE [Concomitant]
     Route: 065
  14. PREMPRO [Concomitant]
     Route: 065
  15. CRESTOR [Concomitant]
     Route: 065
  16. SYNTHROID [Concomitant]
     Route: 065
  17. CELEXA [Concomitant]
     Route: 065
  18. OMEPRAZOLE [Concomitant]
     Route: 065
  19. ALLEGRA [Concomitant]
     Route: 065
  20. ADVAIR [Concomitant]
     Route: 065
  21. FOLIC ACID [Concomitant]
     Route: 065
  22. HYDROCODONE BITARTRATE [Concomitant]
     Dosage: REPORTED AS HYDROCODONE/HOMATROPINE
     Route: 065
  23. ZOFRAN [Concomitant]
     Route: 065
  24. MEGACE [Concomitant]
     Route: 065
  25. VITAMIN B12 [Concomitant]
     Route: 065
  26. IPRATROPIUM [Concomitant]
     Route: 065
  27. ERGOCALCIFEROL [Concomitant]
     Dosage: REPORTED AS CALCIUM W/ VITAMIN D
     Route: 065

REACTIONS (1)
  - Procedural complication [Recovered/Resolved with Sequelae]
